FAERS Safety Report 9394054 (Version 1)
Quarter: 2013Q3

REPORT INFORMATION
  Report Type: Spontaneous
  Country: DE (occurrence: DE)
  Receive Date: 20130710
  Receipt Date: 20130710
  Transmission Date: 20140515
  Serious: Yes (Other)
  Sender: FDA-Public Use
  Company Number: DE-BAUSCH-BL-2013-003989

PATIENT
  Sex: Male

DRUGS (2)
  1. LATANOPROST [Suspect]
     Indication: INTRAOCULAR PRESSURE INCREASED
     Route: 047
     Dates: start: 2012, end: 201306
  2. LATANOPROST [Suspect]
     Indication: GLAUCOMA

REACTIONS (9)
  - Drug ineffective [Unknown]
  - Incorrect product storage [Unknown]
  - Intraocular pressure increased [Unknown]
  - Headache [Unknown]
  - Visual impairment [Unknown]
  - Eye pain [Unknown]
  - Malaise [Unknown]
  - Visual impairment [None]
  - Sensory disturbance [None]
